FAERS Safety Report 26086151 (Version 3)
Quarter: 2025Q4

REPORT INFORMATION
  Report Type: Spontaneous
  Country: US (occurrence: US)
  Receive Date: 20251125
  Receipt Date: 20251224
  Transmission Date: 20260117
  Serious: Yes (Other)
  Sender: ROCHE
  Company Number: US-ROCHE-10000438712

PATIENT
  Age: 44 Year
  Sex: Female

DRUGS (9)
  1. XOLAIR [Suspect]
     Active Substance: OMALIZUMAB
     Indication: Chronic spontaneous urticaria
     Route: 058
     Dates: start: 20251023, end: 20251025
  2. BENADRYL 25MG Allergy ULTRATABS Tablets [Concomitant]
  3. Claritin 10 MG Tablets [Concomitant]
  4. IBUPORFEN 200 MG TABLET [Concomitant]
  5. Zolpidem 10 mg tablet [Concomitant]
  6. VALTREX 1gram [Concomitant]
  7. TACROLIMUS [Concomitant]
     Active Substance: TACROLIMUS
  8. TRIAMCINOLONE [Concomitant]
     Active Substance: TRIAMCINOLONE
  9. TYLENOL 500MG E/S (ACITOMPRPIN) T [Concomitant]

REACTIONS (2)
  - Urticaria [Recovered/Resolved]
  - Angioedema [Recovered/Resolved]

NARRATIVE: CASE EVENT DATE: 20251023
